FAERS Safety Report 8935547 (Version 2)
Quarter: 2012Q4

REPORT INFORMATION
  Report Type: 
  Country: JP (occurrence: JP)
  Receive Date: 20121130
  Receipt Date: 20121219
  Transmission Date: 20130627
  Serious: Yes (Hospitalization)
  Sender: FDA-Public Use
  Company Number: PHHY2012JP109465

PATIENT
  Sex: Male

DRUGS (1)
  1. TEGRETOL [Suspect]
     Indication: NEURALGIA
     Dosage: 600 mg, daily (200 mg morning + 400 mg evening)
     Route: 048

REACTIONS (2)
  - Aortic aneurysm [Recovering/Resolving]
  - Hepatic enzyme increased [Recovering/Resolving]
